FAERS Safety Report 8793355 (Version 1)
Quarter: 2012Q4

REPORT INFORMATION
  Report Type: 
  Country: IT (occurrence: IT)
  Receive Date: 20120918
  Receipt Date: 20120918
  Transmission Date: 20130627
  Serious: Yes (Hospitalization)
  Sender: FDA-Public Use
  Company Number: PHHY2012IT073208

PATIENT
  Age: 74 Year
  Sex: Male

DRUGS (7)
  1. ATENOLOL [Suspect]
     Indication: HYPERTENSION
     Dosage: 50 mg per day
     Route: 048
     Dates: start: 20080101, end: 20120724
  2. MODURETIC [Suspect]
     Indication: HYPERTENSION
     Dates: start: 20110101, end: 20120724
  3. HYDROCHLOROTHIAZIDE [Suspect]
  4. VALSARTAN [Suspect]
     Route: 048
     Dates: start: 20110101
  5. RANEXA [Suspect]
     Indication: ANGINA PECTORIS
     Dosage: 1000 mg, QD
     Route: 048
     Dates: start: 20120301
  6. ADALAT [Suspect]
     Indication: MYOCARDIAL ISCHAEMIA
     Dosage: 30 mg, QD
     Route: 048
     Dates: start: 20110101
  7. PANTORC [Concomitant]
     Indication: GASTROINTESTINAL DISORDER
     Dosage: 40 mg, UNK
     Route: 048

REACTIONS (2)
  - Syncope [Recovered/Resolved]
  - Sinus bradycardia [Recovered/Resolved]
